FAERS Safety Report 9672091 (Version 1)
Quarter: 2013Q4

REPORT INFORMATION
  Report Type: Spontaneous
  Country: US (occurrence: None)
  Receive Date: 20131105
  Receipt Date: 20131105
  Transmission Date: 20140711
  Serious: No
  Sender: FDA-Public Use
  Company Number: None

PATIENT
  Age: 80 Year
  Sex: Male
  Weight: 68.04 kg

DRUGS (8)
  1. DOXYCYCLINE HYCLATE [Suspect]
     Indication: CYSTITIS
     Route: 048
     Dates: start: 20131018, end: 20131024
  2. METOPROLOL [Concomitant]
  3. GLIPIZIDE [Concomitant]
  4. FOSINOPRIL [Concomitant]
  5. TERAZOSIN [Concomitant]
  6. AMLODIPINE [Concomitant]
  7. EQUATE ARTHRITIS PAIN [Concomitant]
  8. ASPIRIN [Concomitant]

REACTIONS (2)
  - Gingival pain [None]
  - Lip blister [None]
